FAERS Safety Report 13733313 (Version 1)
Quarter: 2017Q3

REPORT INFORMATION
  Report Type: Spontaneous
  Country: US (occurrence: US)
  Receive Date: 20170707
  Receipt Date: 20170707
  Transmission Date: 20171127
  Serious: No
  Sender: FDA-Public Use
  Company Number: US-ROCHE-1542530

PATIENT
  Sex: Female

DRUGS (2)
  1. GAZYVA [Suspect]
     Active Substance: OBINUTUZUMAB
     Indication: PRODUCT USED FOR UNKNOWN INDICATION
     Dosage: PLANNED TO RECEIVE 100MG
     Route: 065
     Dates: start: 20150218
  2. GAZYVA [Suspect]
     Active Substance: OBINUTUZUMAB
     Dosage: FINSIHING THE DOSE FROM YESTERDAY
     Route: 065
     Dates: start: 20150219

REACTIONS (1)
  - Back pain [Recovering/Resolving]
